FAERS Safety Report 9925454 (Version 1)
Quarter: 2014Q1

REPORT INFORMATION
  Report Type: Spontaneous
  Country: US (occurrence: None)
  Receive Date: 20140225
  Receipt Date: 20140225
  Transmission Date: 20141002
  Serious: No
  Sender: FDA-Public Use
  Company Number: None

PATIENT
  Age: 75 Year
  Sex: Female

DRUGS (1)
  1. MYCOPHENOLATE [Suspect]
     Indication: SCLEROMALACIA
     Dosage: EVERY MORNING
     Route: 048
     Dates: start: 20130101

REACTIONS (1)
  - Ulcer haemorrhage [None]
